FAERS Safety Report 10675687 (Version 2)
Quarter: 2015Q1

REPORT INFORMATION
  Report Type: Spontaneous
  Country: US (occurrence: US)
  Receive Date: 20141224
  Receipt Date: 20150106
  Transmission Date: 20150720
  Serious: Yes (Hospitalization)
  Sender: FDA-Public Use
  Company Number: US-CUBIST PHARMACEUTICALS, INC.-2014CBST001694

PATIENT

DRUGS (1)
  1. CUBICIN [Suspect]
     Active Substance: DAPTOMYCIN
     Indication: PRODUCT USED FOR UNKNOWN INDICATION
     Dosage: UNK UNK, UNK
     Route: 065
     Dates: start: 2014, end: 2014

REACTIONS (1)
  - Septic arthritis staphylococcal [Unknown]

NARRATIVE: CASE EVENT DATE: 2014
